FAERS Safety Report 8378530-X (Version None)
Quarter: 2012Q2

REPORT INFORMATION
  Report Type: 
  Country: None (occurrence: None)
  Receive Date: 20120522
  Receipt Date: 20120515
  Transmission Date: 20120825
  Serious: Yes (Other)
  Sender: FDA-Public Use
  Company Number: BR-ABBOTT-12P-020-0925466-00

PATIENT
  Sex: Female
  Weight: 58 kg

DRUGS (6)
  1. DORFLEX [Concomitant]
     Indication: HEADACHE
     Route: 048
  2. DICLOFENAC POTASSIUM [Concomitant]
     Indication: HEADACHE
     Dosage: 1 TABLET DAILY AS NEEDED
     Route: 048
  3. HUMIRA [Suspect]
     Indication: RHEUMATOID ARTHRITIS
     Route: 058
     Dates: start: 20111106
  4. METHOTREXATE [Suspect]
     Indication: RHEUMATOID ARTHRITIS
     Route: 048
  5. METHOTREXATE [Suspect]
     Dosage: WEEKLY DOSE: 10MG
  6. METHOTREXATE [Suspect]
     Route: 048

REACTIONS (18)
  - DEVICE DISLOCATION [None]
  - FALL [None]
  - HYPERSENSITIVITY [None]
  - UNEVALUABLE EVENT [None]
  - NAUSEA [None]
  - HIP FRACTURE [None]
  - ARTHRALGIA [None]
  - PLATELET COUNT DECREASED [None]
  - SKIN DISCOLOURATION [None]
  - IMMUNODEFICIENCY [None]
  - HAEMATOMA [None]
  - JOINT SWELLING [None]
  - LIGAMENT SPRAIN [None]
  - SKIN FISSURES [None]
  - WEIGHT INCREASED [None]
  - PAIN IN EXTREMITY [None]
  - SKIN HYPERTROPHY [None]
  - HEADACHE [None]
